FAERS Safety Report 10188263 (Version 1)
Quarter: 2014Q2

REPORT INFORMATION
  Report Type: Spontaneous
  Country: BE (occurrence: BE)
  Receive Date: 20140522
  Receipt Date: 20140522
  Transmission Date: 20141212
  Serious: Yes (Hospitalization)
  Sender: FDA-Public Use
  Company Number: BE-US-EMD SERONO, INC.-7293531

PATIENT
  Age: 58 Year
  Sex: Female

DRUGS (1)
  1. REBIF [Suspect]
     Indication: MULTIPLE SCLEROSIS
     Dates: start: 2009

REACTIONS (6)
  - Gastric disorder [Unknown]
  - General physical health deterioration [Unknown]
  - Aphasia [Unknown]
  - Staring [Unknown]
  - Cognitive disorder [Unknown]
  - Lack of spontaneous speech [Unknown]
